FAERS Safety Report 7803466-X (Version None)
Quarter: 2011Q4

REPORT INFORMATION
  Report Type: 
  Country: None (occurrence: None)
  Receive Date: 20111007
  Receipt Date: 20110811
  Transmission Date: 20120403
  Serious: Yes (Other)
  Sender: FDA-Public Use
  Company Number: CA-MERCK-1108USA01921

PATIENT
  Sex: Male

DRUGS (2)
  1. PROSCAR [Suspect]
     Route: 048
  2. DUTASTERIDE [Concomitant]
     Route: 065

REACTIONS (1)
  - PROSTATE CANCER [None]
